FAERS Safety Report 5935870-9 (Version None)
Quarter: 2008Q4

REPORT INFORMATION
  Report Type: 
  Country: None (occurrence: None)
  Receive Date: 20081029
  Receipt Date: 20081029
  Transmission Date: 20090506
  Serious: Yes (Other)
  Sender: FDA-Public Use
  Company Number: None

PATIENT
  Age: 13 Year
  Sex: Female
  Weight: 43.9989 kg

DRUGS (1)
  1. VYVANSE [Suspect]
     Indication: ATTENTION DEFICIT/HYPERACTIVITY DISORDER
     Dosage: 30MG ONE EVERY MORNING PO
     Route: 048
     Dates: start: 20080922, end: 20081024

REACTIONS (8)
  - ERYTHEMA [None]
  - ILL-DEFINED DISORDER [None]
  - LOCALISED INFECTION [None]
  - OBSESSIVE-COMPULSIVE DISORDER [None]
  - ONYCHOPHAGIA [None]
  - SELF INJURIOUS BEHAVIOUR [None]
  - SKIN LACERATION [None]
  - TRICHOTILLOMANIA [None]
